FAERS Safety Report 25035174 (Version 1)
Quarter: 2025Q1

REPORT INFORMATION
  Report Type: Spontaneous
  Country: CN (occurrence: CN)
  Receive Date: 20250304
  Receipt Date: 20250304
  Transmission Date: 20250409
  Serious: Yes (Other)
  Sender: RANBAXY
  Company Number: CN-SUN PHARMACEUTICAL INDUSTRIES LTD-2025R1-496559

PATIENT
  Age: 35 Year
  Sex: Female

DRUGS (5)
  1. ASCORBIC ACID [Suspect]
     Active Substance: ASCORBIC ACID
     Indication: Acute generalised exanthematous pustulosis
     Dosage: 12 MILLILITER, QD
     Route: 042
  2. CALCIUM GLUCONATE [Suspect]
     Active Substance: CALCIUM GLUCONATE
     Indication: Acute generalised exanthematous pustulosis
     Dosage: 10 MILLILITER, QD
     Route: 065
  3. CETIRIZINE [Suspect]
     Active Substance: CETIRIZINE HYDROCHLORIDE
     Indication: Acute generalised exanthematous pustulosis
     Route: 065
  4. DEXAMETHASONE SODIUM PHOSPHATE [Suspect]
     Active Substance: DEXAMETHASONE SODIUM PHOSPHATE
     Indication: Acute generalised exanthematous pustulosis
     Dosage: 10 MILLIGRAM, QD
     Route: 042
  5. SODIUM THIOSULFATE [Suspect]
     Active Substance: SODIUM THIOSULFATE
     Indication: Acute generalised exanthematous pustulosis
     Dosage: 640 MILLIGRAM, QD
     Route: 065

REACTIONS (1)
  - Condition aggravated [Unknown]
